FAERS Safety Report 24707086 (Version 2)
Quarter: 2024Q4

REPORT INFORMATION
  Report Type: Report from Study
  Country: DE (occurrence: DE)
  Receive Date: 20241206
  Receipt Date: 20241212
  Transmission Date: 20250114
  Serious: Yes (Other)
  Sender: MERCK
  Company Number: DE-009507513-2410DEU006945

PATIENT
  Age: 66 Year
  Sex: Female

DRUGS (10)
  1. SOTATERCEPT [Suspect]
     Active Substance: SOTATERCEPT
     Indication: Pulmonary hypertension
     Dosage: UNK
     Dates: start: 20241002
  2. WINREVAIR [Suspect]
     Active Substance: SOTATERCEPT-CSRK
     Indication: Pulmonary hypertension
     Dosage: 0.7 MILLIGRAM/KILOGRAM, UNK FREQUENCY
     Dates: start: 20241023
  3. WINREVAIR [Suspect]
     Active Substance: SOTATERCEPT-CSRK
     Indication: Pulmonary hypertension
     Dosage: UNK
     Dates: start: 20241113
  4. INFLIXIMAB [Concomitant]
     Active Substance: INFLIXIMAB
     Dosage: UNK
  5. SELEXIPAG [Concomitant]
     Active Substance: SELEXIPAG
     Dosage: UNK
  6. MACITENTAN [Concomitant]
     Active Substance: MACITENTAN
     Dosage: UNK
  7. CORTISONE [Concomitant]
     Active Substance: CORTISONE
     Dosage: 5 MILLIGRAM
  8. CORTISONE [Concomitant]
     Active Substance: CORTISONE
     Dosage: 5 MILLIGRAM
  9. BISOPROLOL [Concomitant]
     Active Substance: BISOPROLOL
     Dosage: 2.5 MILLIGRAM
  10. BISOPROLOL [Concomitant]
     Active Substance: BISOPROLOL
     Dosage: 2.5 MILLIGRAM

REACTIONS (9)
  - Pneumonia [Recovered/Resolved]
  - Headache [Recovered/Resolved]
  - Diarrhoea [Unknown]
  - Dyspepsia [Not Recovered/Not Resolved]
  - Headache [Recovered/Resolved]
  - Epistaxis [Recovered/Resolved]
  - Influenza like illness [Recovered/Resolved]
  - Infection [Unknown]
  - Gout [Unknown]

NARRATIVE: CASE EVENT DATE: 20241005
